FAERS Safety Report 8343200-0 (Version None)
Quarter: 2012Q2

REPORT INFORMATION
  Report Type: 
  Country: None (occurrence: None)
  Receive Date: 20120508
  Receipt Date: 20120504
  Transmission Date: 20120825
  Serious: Yes (Hospitalization)
  Sender: FDA-Public Use
  Company Number: US-PFIZER INC-2012110303

PATIENT
  Sex: Female
  Weight: 88.435 kg

DRUGS (3)
  1. NARDIL [Suspect]
     Indication: DEPRESSION
     Dosage: UNK. 2X/DAY
     Dates: start: 19930101
  2. NARDIL [Suspect]
     Indication: ANXIETY
     Dosage: UNK. 2X/DAY
     Route: 048
     Dates: end: 19930101
  3. RELAFEN [Suspect]
     Dosage: UNK

REACTIONS (1)
  - PSYCHOTIC DISORDER [None]
